FAERS Safety Report 18224958 (Version 2)
Quarter: 2020Q4

REPORT INFORMATION
  Report Type: Spontaneous
  Country: DE (occurrence: DE)
  Receive Date: 20200903
  Receipt Date: 20201014
  Transmission Date: 20210113
  Serious: Yes (Other)
  Sender: FDA-Public Use
  Company Number: DE-ROCHE-2666510

PATIENT
  Sex: Female

DRUGS (3)
  1. TOCILIZUMAB. [Suspect]
     Active Substance: TOCILIZUMAB
     Indication: BRACHIOCEPHALIC ARTERY STENOSIS
  2. TOCILIZUMAB. [Suspect]
     Active Substance: TOCILIZUMAB
     Indication: VASCULITIS
     Route: 065
  3. TOCILIZUMAB. [Suspect]
     Active Substance: TOCILIZUMAB
     Indication: AORTITIS

REACTIONS (7)
  - Organising pneumonia [Unknown]
  - Peripheral arterial occlusive disease [Unknown]
  - Pneumonia [Unknown]
  - Cerebral artery occlusion [Unknown]
  - Infectious pleural effusion [Unknown]
  - Lung disorder [Unknown]
  - Sepsis [Unknown]

NARRATIVE: CASE EVENT DATE: 201901
